FAERS Safety Report 12248125 (Version 2)
Quarter: 2016Q2

REPORT INFORMATION
  Report Type: Spontaneous
  Country: AU (occurrence: AU)
  Receive Date: 20160408
  Receipt Date: 20160512
  Transmission Date: 20160815
  Serious: Yes (Disabling)
  Sender: FDA-Public Use
  Company Number: AU-BAUSCH-BL-2016-007796

PATIENT
  Age: 58 Year
  Sex: Male
  Weight: 95 kg

DRUGS (1)
  1. EFUDEX [Suspect]
     Active Substance: FLUOROURACIL
     Indication: SOLAR LENTIGO
     Route: 061
     Dates: start: 20160314, end: 20160316

REACTIONS (13)
  - Rash erythematous [Recovering/Resolving]
  - Lip swelling [Recovered/Resolved]
  - Fatigue [Recovering/Resolving]
  - Furuncle [Recovering/Resolving]
  - Chronic actinic dermatitis [Recovered/Resolved]
  - Photosensitivity reaction [Recovered/Resolved]
  - Pruritus [Recovering/Resolving]
  - Swelling [Recovered/Resolved]
  - Skin exfoliation [Recovering/Resolving]
  - Skin texture abnormal [Recovering/Resolving]
  - Lip pruritus [Recovered/Resolved]
  - Skin burning sensation [Recovering/Resolving]
  - Blister [Recovering/Resolving]

NARRATIVE: CASE EVENT DATE: 2016
